FAERS Safety Report 5378964-1 (Version None)
Quarter: 2007Q3

REPORT INFORMATION
  Report Type: 
  Country: None (occurrence: None)
  Receive Date: 20070705
  Receipt Date: 20070621
  Transmission Date: 20080115
  Serious: Yes (Life-Threatening, Hospitalization, Disabling)
  Sender: FDA-Public Use
  Company Number: GB-AMGEN-US158480

PATIENT
  Sex: Male
  Weight: 76 kg

DRUGS (3)
  1. ENBREL [Suspect]
     Indication: RHEUMATOID ARTHRITIS
     Route: 058
     Dates: start: 20011101, end: 20020701
  2. ENBREL [Suspect]
     Route: 058
     Dates: start: 20020801
  3. METHOTREXATE [Concomitant]
     Indication: RHEUMATOID ARTHRITIS
     Route: 048
     Dates: start: 20000101

REACTIONS (6)
  - CARDIAC TAMPONADE [None]
  - CONDITION AGGRAVATED [None]
  - LOBAR PNEUMONIA [None]
  - PERICARDIAL EFFUSION [None]
  - RHEUMATOID ARTHRITIS [None]
  - RHEUMATOID VASCULITIS [None]
